FAERS Safety Report 17854442 (Version 2)
Quarter: 2020Q2

REPORT INFORMATION
  Report Type: Spontaneous
  Country: US (occurrence: US)
  Receive Date: 20200603
  Receipt Date: 20200630
  Transmission Date: 20200714
  Serious: No
  Sender: FDA-Public Use
  Company Number: US-SA-2020SA139322

PATIENT

DRUGS (1)
  1. DUPIXENT [Suspect]
     Active Substance: DUPILUMAB
     Indication: SINUS POLYP
     Dosage: 300 MG, QOW
     Route: 058
     Dates: start: 20200410

REACTIONS (3)
  - Chest pain [Unknown]
  - Eye pain [Unknown]
  - Muscle twitching [Unknown]

NARRATIVE: CASE EVENT DATE: 2020
